FAERS Safety Report 10334572 (Version 1)
Quarter: 2014Q3

REPORT INFORMATION
  Report Type: Spontaneous
  Country: US (occurrence: US)
  Receive Date: 20140723
  Receipt Date: 20140723
  Transmission Date: 20150326
  Serious: No
  Sender: FDA-Public Use
  Company Number: US-MYLANLABS-2014S1010377

PATIENT
  Sex: Female

DRUGS (1)
  1. HALOPERIDOL. [Suspect]
     Active Substance: HALOPERIDOL
     Indication: PSYCHOTIC DISORDER
     Route: 048
     Dates: start: 2012, end: 201401

REACTIONS (4)
  - Drug effect decreased [Recovered/Resolved]
  - Vomiting [Recovered/Resolved]
  - Psychotic disorder [Recovered/Resolved]
  - Treatment noncompliance [Recovered/Resolved]

NARRATIVE: CASE EVENT DATE: 2012
